FAERS Safety Report 13112894 (Version 1)
Quarter: 2017Q1

REPORT INFORMATION
  Report Type: Spontaneous
  Country: US (occurrence: US)
  Receive Date: 20170113
  Receipt Date: 20170113
  Transmission Date: 20170428
  Serious: No
  Sender: FDA-Public Use
  Company Number: None

PATIENT
  Sex: Female

DRUGS (1)
  1. HUMIRA [Suspect]
     Active Substance: ADALIMUMAB
     Indication: MYOCARDITIS INFECTIOUS
     Route: 058
     Dates: start: 20160912, end: 20161229

REACTIONS (5)
  - Sneezing [None]
  - Ear pain [None]
  - Swelling [None]
  - Dizziness [None]
  - Purulence [None]
